FAERS Safety Report 4548131-X (Version None)
Quarter: 2005Q1

REPORT INFORMATION
  Report Type: 
  Country: None (occurrence: None)
  Receive Date: 20050104
  Receipt Date: 20050104
  Transmission Date: 20050727
  Serious: Yes (Hospitalization)
  Sender: FDA-Public Use
  Company Number: None

PATIENT
  Age: 76 Year
  Sex: Female

DRUGS (2)
  1. NAVELBINE [Suspect]
     Dates: end: 20041220
  2. HERCEPTIN [Suspect]

REACTIONS (17)
  - ASTHENIA [None]
  - CREPITATIONS [None]
  - DECREASED APPETITE [None]
  - DECUBITUS ULCER [None]
  - DEEP VEIN THROMBOSIS [None]
  - DEHYDRATION [None]
  - ECCHYMOSIS [None]
  - ESCHERICHIA SEPSIS [None]
  - HYPOCALCAEMIA [None]
  - HYPOKALAEMIA [None]
  - HYPOMAGNESAEMIA [None]
  - LETHARGY [None]
  - NAUSEA [None]
  - OEDEMA PERIPHERAL [None]
  - RESPIRATORY RATE INCREASED [None]
  - VENTRICULAR TACHYCARDIA [None]
  - VOMITING [None]
